FAERS Safety Report 8966023 (Version 1)
Quarter: 2012Q4

REPORT INFORMATION
  Report Type: Report from Study
  Country: GB (occurrence: US)
  Receive Date: 20121217
  Receipt Date: 20121217
  Transmission Date: 20130627
  Serious: Yes (Death, Hospitalization, Other)
  Sender: FDA-Public Use
  Company Number: US-BRISTOL-MYERS SQUIBB COMPANY-17188970

PATIENT
  Age: 65 Year
  Sex: Female

DRUGS (11)
  1. CETUXIMAB [Suspect]
     Indication: COLORECTAL CANCER METASTATIC
     Dosage: 1DF:Cyc1:Over120min D2.Over60min D8+15
Cyc2:Day1:Over60mn D18+15(200mg/m2)3in21D
Cyc3:Day1:Wdrwn
     Route: 042
     Dates: start: 20100708, end: 20100818
  2. PERTUZUMAB [Suspect]
     Indication: COLON CANCER METASTATIC
     Dosage: Cycle 1: 21days (175mg)
Cycle2: day 1(175mg)-28Jul2010
cycle 3: day 1-18Aug2010
     Route: 042
     Dates: start: 20100707, end: 20100818
  3. PREDNISONE [Concomitant]
  4. ZOLPIDEM [Concomitant]
  5. LIPITOR [Concomitant]
  6. SERTRALINE [Concomitant]
  7. TYLENOL [Concomitant]
  8. PERCOCET [Concomitant]
  9. KEFZOL [Concomitant]
  10. LIDOCAINE [Concomitant]
  11. CAPHOSOL [Concomitant]

REACTIONS (3)
  - Myocardial infarction [Fatal]
  - Lung infection [Unknown]
  - Mucosal inflammation [Recovered/Resolved]
